FAERS Safety Report 9517494 (Version 1)
Quarter: 2013Q3

REPORT INFORMATION
  Report Type: Spontaneous
  Country: US (occurrence: US)
  Receive Date: 20130911
  Receipt Date: 20130911
  Transmission Date: 20140515
  Serious: Yes (Death, Hospitalization)
  Sender: FDA-Public Use
  Company Number: US-MYLANLABS-2013S1019754

PATIENT
  Age: 57 Year
  Sex: Female

DRUGS (10)
  1. METFORMIN [Suspect]
     Indication: COMPLETED SUICIDE
     Route: 048
  2. MIRTAZAPINE [Concomitant]
     Route: 065
  3. ATORVASTATIN [Concomitant]
     Route: 065
  4. GLIPIZIDE [Concomitant]
     Route: 065
  5. ZIPIO-G [Concomitant]
     Route: 065
  6. TRAZODONE [Concomitant]
     Route: 065
  7. LOSARTAN [Concomitant]
     Route: 065
  8. CLONAZEPAM [Concomitant]
     Route: 065
  9. UBIDECARENONE [Concomitant]
     Route: 065
  10. ASPIRIN [Concomitant]
     Route: 065

REACTIONS (8)
  - Toxicity to various agents [Fatal]
  - Completed suicide [Fatal]
  - Depressed level of consciousness [Fatal]
  - Vomiting [Unknown]
  - Diarrhoea [Unknown]
  - Hypotension [Fatal]
  - Poisoning deliberate [Fatal]
  - Stomatitis [Unknown]
